FAERS Safety Report 11526466 (Version 1)
Quarter: 2015Q3

REPORT INFORMATION
  Report Type: Spontaneous
  Country: US (occurrence: US)
  Receive Date: 20150903
  Receipt Date: 20150903
  Transmission Date: 20151125
  Serious: No
  Sender: FDA-Public Use
  Company Number: US-ELI_LILLY_AND_COMPANY-US201310006066

PATIENT
  Sex: Female

DRUGS (1)
  1. CYMBALTA [Suspect]
     Active Substance: DULOXETINE HYDROCHLORIDE
     Indication: DEPRESSION
     Dosage: 30 MG, QD
     Route: 065
     Dates: start: 201304, end: 20131016

REACTIONS (10)
  - Memory impairment [Unknown]
  - Nausea [Unknown]
  - Confusional state [Unknown]
  - Arthralgia [Unknown]
  - Headache [Unknown]
  - Nightmare [Unknown]
  - Influenza like illness [Unknown]
  - Paraesthesia [Unknown]
  - Intentional product misuse [Unknown]
  - Drug withdrawal syndrome [Unknown]
